FAERS Safety Report 12394328 (Version 1)
Quarter: 2016Q2

REPORT INFORMATION
  Report Type: Spontaneous
  Country: GB (occurrence: GB)
  Receive Date: 20160523
  Receipt Date: 20160523
  Transmission Date: 20160815
  Serious: Yes (Other)
  Sender: FDA-Public Use
  Company Number: GB-PFIZER INC-2016261809

PATIENT
  Age: 28 Year
  Sex: Female
  Weight: 68 kg

DRUGS (7)
  1. IRON SULPHATE [Concomitant]
     Active Substance: FERROUS SULFATE ANHYDROUS
     Dosage: 200MG PRESCRIBED THREE TIMES A DAY, BUT WAS TAKING 400-600MG AT NIGHT.
  2. DEXAMFETAMINE SULPHATE [Concomitant]
     Active Substance: DEXTROAMPHETAMINE SULFATE
     Dosage: 20 MG OVER 2-3 DOSES IN A DAY
  3. LANSOPRAZOLE. [Concomitant]
     Active Substance: LANSOPRAZOLE
     Indication: GASTRIC ULCER
     Dosage: 15 MG, 1X/DAY
  4. LANSOPRAZOLE. [Concomitant]
     Active Substance: LANSOPRAZOLE
     Dosage: 15 MG, 2X/DAY
  5. OMEGA 3 CARDIO [Concomitant]
     Dosage: UNK
  6. DOXYCYCLINE MONOHYDRATE [Suspect]
     Active Substance: DOXYCYCLINE
     Indication: ACNE CYSTIC
     Dosage: 100 MG, 1X/DAY
     Route: 048
     Dates: start: 20151110, end: 20160416
  7. CITALOPRAM [Concomitant]
     Active Substance: CITALOPRAM HYDROBROMIDE
     Dosage: 20 MG, 1X/DAY

REACTIONS (6)
  - Anxiety [Recovering/Resolving]
  - Oesophageal irritation [Recovered/Resolved]
  - Odynophagia [Recovered/Resolved]
  - Oesophageal ulcer [Recovered/Resolved]
  - Oesophagitis [Recovered/Resolved]
  - Condition aggravated [Recovering/Resolving]

NARRATIVE: CASE EVENT DATE: 20151206
